FAERS Safety Report 19157931 (Version 1)
Quarter: 2021Q2

REPORT INFORMATION
  Report Type: Spontaneous
  Country: US (occurrence: US)
  Receive Date: 20210420
  Receipt Date: 20210420
  Transmission Date: 20210717
  Serious: Yes (Hospitalization)
  Sender: FDA-Public Use
  Company Number: None

PATIENT
  Sex: Male
  Weight: 47.7 kg

DRUGS (1)
  1. ERBITUX [Suspect]
     Active Substance: CETUXIMAB

REACTIONS (7)
  - Failure to thrive [None]
  - Therapy interrupted [None]
  - Dizziness [None]
  - Asthenia [None]
  - Acute kidney injury [None]
  - Orthostatic hypotension [None]
  - Dehydration [None]

NARRATIVE: CASE EVENT DATE: 20210412
